FAERS Safety Report 24376760 (Version 1)
Quarter: 2024Q3

REPORT INFORMATION
  Report Type: Spontaneous
  Country: US (occurrence: None)
  Receive Date: 20240927
  Receipt Date: 20240927
  Transmission Date: 20241017
  Serious: No
  Sender: Public
  Company Number: None

PATIENT
  Age: 68 Year
  Sex: Female
  Weight: 67.05 kg

DRUGS (8)
  1. ZOLEDRONIC ACID [Suspect]
     Active Substance: ZOLEDRONIC ACID
     Indication: Blood calcium increased
     Dosage: OTHER QUANTITY : 1 INJECTION(S);?
     Route: 042
  2. HUMALOG [Concomitant]
     Active Substance: INSULIN LISPRO
  3. LANTUS [Concomitant]
     Active Substance: INSULIN GLARGINE
  4. DICYCLOMINE [Concomitant]
     Active Substance: DICYCLOMINE HYDROCHLORIDE
  5. TRAZODONE [Concomitant]
     Active Substance: TRAZODONE HYDROCHLORIDE
  6. UNSPECIFIED INGREDIENT [Concomitant]
     Active Substance: UNSPECIFIED INGREDIENT
  7. b12 [Concomitant]
  8. B1 [Concomitant]

REACTIONS (6)
  - Hypoaesthesia [None]
  - Hypoaesthesia [None]
  - Hypoaesthesia oral [None]
  - Heart rate increased [None]
  - Anxiety [None]
  - Dyspnoea [None]

NARRATIVE: CASE EVENT DATE: 20240925
